FAERS Safety Report 10832072 (Version 2)
Quarter: 2015Q1

REPORT INFORMATION
  Report Type: Spontaneous
  Country: SV (occurrence: SV)
  Receive Date: 20150219
  Receipt Date: 20150310
  Transmission Date: 20150721
  Serious: Yes (Life-Threatening, Hospitalization)
  Sender: FDA-Public Use
  Company Number: SV-GLAXOSMITHKLINE-SV2015GSK020916

PATIENT
  Age: 61 Year
  Sex: Male

DRUGS (6)
  1. SODIUM CHLORIDE. [Concomitant]
     Active Substance: SODIUM CHLORIDE
  2. DUODART [Suspect]
     Active Substance: DUTASTERIDE\TAMSULOSIN
     Indication: BENIGN PROSTATIC HYPERPLASIA
     Dosage: 1 UNK, QD
     Dates: start: 201408, end: 201409
  3. DUODART [Suspect]
     Active Substance: DUTASTERIDE\TAMSULOSIN
     Indication: CHRONIC KIDNEY DISEASE
  4. POTASSIUM [Concomitant]
     Active Substance: POTASSIUM
     Route: 048
  5. FERRUM [Concomitant]
     Active Substance: FERROUS FUMARATE
  6. MULTIVITAMINS [Concomitant]
     Active Substance: VITAMINS

REACTIONS (1)
  - Blood creatinine increased [Recovered/Resolved]

NARRATIVE: CASE EVENT DATE: 201408
